FAERS Safety Report 6084655-4 (Version None)
Quarter: 2009Q1

REPORT INFORMATION
  Report Type: 
  Country: None (occurrence: None)
  Receive Date: 20090211
  Receipt Date: 20080808
  Transmission Date: 20090719
  Serious: Yes (Other)
  Sender: FDA-Public Use
  Company Number: US-WYE-H05565608

PATIENT
  Age: 23 Year
  Sex: Male
  Weight: 83.99 kg

DRUGS (3)
  1. EFFEXOR [Suspect]
     Indication: DEPRESSION
     Dosage: 1 TABLET 1X PER 1 DAY, ORAL
     Route: 048
     Dates: start: 20080701, end: 20080806
  2. XANAX [Concomitant]
  3. CENTRUM (MULTIVITAMIN/MULTIMINERAL) [Concomitant]

REACTIONS (3)
  - ABDOMINAL PAIN UPPER [None]
  - DYSPEPSIA [None]
  - REGURGITATION [None]
